FAERS Safety Report 7400353-6 (Version None)
Quarter: 2011Q2

REPORT INFORMATION
  Report Type: 
  Country: None (occurrence: None)
  Receive Date: 20110407
  Receipt Date: 20110405
  Transmission Date: 20111010
  Serious: Yes (Hospitalization, Other)
  Sender: FDA-Public Use
  Company Number: BR-ABBOTT-10P-020-0631319-00

PATIENT
  Sex: Female
  Weight: 70 kg

DRUGS (12)
  1. HUMIRA [Suspect]
  2. NAPROXEN SODIUM [Concomitant]
     Indication: RHEUMATOID ARTHRITIS
     Route: 048
  3. PREDNISONE [Concomitant]
     Indication: RHEUMATOID ARTHRITIS
     Route: 048
  4. METAMIZOLE [Concomitant]
     Indication: PAIN
     Route: 048
  5. CHLORTHALIDONE [Concomitant]
     Indication: HYPERTENSION
     Route: 048
  6. PARACETAMOL [Concomitant]
     Indication: PAIN
     Route: 048
  7. ESOMEPRAZOLE [Concomitant]
     Indication: GASTRIC DISORDER
     Route: 048
  8. CYCLOBENZAPRIN HYDROCHLORIDE [Concomitant]
     Indication: MUSCLE RELAXANT THERAPY
     Route: 048
  9. HUMIRA [Suspect]
     Indication: RHEUMATOID ARTHRITIS
     Route: 058
     Dates: end: 20100603
  10. CITALOPRAM [Concomitant]
     Indication: DEPRESSION
     Route: 048
  11. LOSARTAN POTASSIUM [Concomitant]
     Indication: HYPERTENSION
     Route: 048
  12. DICLOFENAC SODIUM [Concomitant]
     Indication: RHEUMATOID ARTHRITIS
     Route: 048

REACTIONS (8)
  - PAIN IN EXTREMITY [None]
  - DRUG INEFFECTIVE [None]
  - BLOOD CHOLESTEROL INCREASED [None]
  - ARTHRITIS [None]
  - RHEUMATIC FEVER [None]
  - HAEMORRHAGE [None]
  - DIABETES MELLITUS [None]
  - ARTHRALGIA [None]
